FAERS Safety Report 23831794 (Version 1)
Quarter: 2024Q2

REPORT INFORMATION
  Report Type: Spontaneous
  Country: US (occurrence: US)
  Receive Date: 20240508
  Receipt Date: 20240508
  Transmission Date: 20240716
  Serious: Yes (Other)
  Sender: FDA-Public Use
  Company Number: US-RECORDATI RARE DISEASE INC.-2024003054

PATIENT

DRUGS (5)
  1. SILTUXIMAB [Suspect]
     Active Substance: SILTUXIMAB
     Indication: Castleman^s disease
     Dosage: 11 MILLIGRAM/KILOGRAM, QW
     Route: 042
  2. SILTUXIMAB [Suspect]
     Active Substance: SILTUXIMAB
     Dosage: 11 MG/KG, Q3W
     Route: 042
  3. CYCLOPHOSPHAMIDE [Concomitant]
     Active Substance: CYCLOPHOSPHAMIDE
     Indication: Castleman^s disease
     Dosage: 1 DOSE
  4. VINCRISTINE [Concomitant]
     Active Substance: VINCRISTINE
     Indication: Castleman^s disease
     Dosage: 1 DOSE
  5. PREDNISONE [Concomitant]
     Active Substance: PREDNISONE
     Indication: Castleman^s disease
     Dosage: 1 DOSE

REACTIONS (2)
  - Posterior reversible encephalopathy syndrome [Unknown]
  - Off label use [Recovered/Resolved]
